FAERS Safety Report 7942057-7 (Version None)
Quarter: 2011Q4

REPORT INFORMATION
  Report Type: 
  Country: None (occurrence: None)
  Receive Date: 20111128
  Receipt Date: 20111128
  Transmission Date: 20120403
  Serious: No
  Sender: FDA-Public Use
  Company Number: None

PATIENT
  Age: 37 Year
  Sex: Male

DRUGS (1)
  1. ISONIAZID [Suspect]
     Indication: TUBERCULOSIS
     Dates: start: 20111117, end: 20111122

REACTIONS (2)
  - MALAISE [None]
  - HYPOAESTHESIA [None]
